FAERS Safety Report 5268363-5 (Version None)
Quarter: 2007Q1

REPORT INFORMATION
  Report Type: 
  Country: None (occurrence: None)
  Receive Date: 20070313
  Receipt Date: 20070301
  Transmission Date: 20070707
  Serious: Yes (Death)
  Sender: FDA-Public Use
  Company Number: 011474

PATIENT
  Age: 52 Year
  Sex: Female
  Weight: 67.2 kg

DRUGS (1)
  1. CLARAVIS [Suspect]
     Indication: BRAIN NEOPLASM MALIGNANT
     Dosage: 80 MG, BID, ORAL
     Route: 048
     Dates: start: 20060330, end: 20060501

REACTIONS (1)
  - DEATH [None]
